FAERS Safety Report 6178377-9 (Version None)
Quarter: 2009Q2

REPORT INFORMATION
  Report Type: 
  Country: None (occurrence: None)
  Receive Date: 20090504
  Receipt Date: 20090424
  Transmission Date: 20091009
  Serious: Yes (Death)
  Sender: FDA-Public Use
  Company Number: JP-ABBOTT-09P-087-0570842-00

PATIENT
  Age: 32 Year
  Sex: Female

DRUGS (5)
  1. LEUPLIN SR FOR INJECTION 11.25 MG [Suspect]
     Indication: BREAST CANCER FEMALE
     Route: 058
     Dates: start: 20060404, end: 20070626
  2. LEUPROLIDE ACETATE [Suspect]
     Indication: BREAST CANCER FEMALE
     Dosage: LAST DOSE WAS 07 MAR 2006
     Dates: start: 20041018, end: 20060403
  3. TAXOL [Concomitant]
     Indication: METASTASES TO LIVER
     Route: 042
     Dates: start: 20061228, end: 20070111
  4. TAXOL [Concomitant]
     Route: 042
     Dates: start: 20070322, end: 20070731
  5. HERCEPTIN [Concomitant]
     Indication: METASTASES TO LIVER
     Route: 042
     Dates: start: 20070130

REACTIONS (1)
  - BREAST CANCER STAGE II [None]
